FAERS Safety Report 14321402 (Version 1)
Quarter: 2017Q4

REPORT INFORMATION
  Report Type: Spontaneous
  Country: US (occurrence: US)
  Receive Date: 20171223
  Receipt Date: 20171223
  Transmission Date: 20180321
  Serious: Yes (Hospitalization, Other)
  Sender: FDA-Public Use
  Company Number: US-GLAXOSMITHKLINE-US2017194478

PATIENT
  Sex: Female

DRUGS (5)
  1. PROVENTIL [Concomitant]
     Active Substance: ALBUTEROL
  2. HYDROCHLOROTHIAZIDE. [Suspect]
     Active Substance: HYDROCHLOROTHIAZIDE
  3. DYAZIDE [Suspect]
     Active Substance: HYDROCHLOROTHIAZIDE\TRIAMTERENE
     Indication: HYPERTENSION
     Dosage: 1 DF, 1D
     Route: 048
     Dates: start: 1979
  4. HYDROCHLOROTHIAZIDE + TRIAMTERENE [Suspect]
     Active Substance: HYDROCHLOROTHIAZIDE\TRIAMTERENE
     Indication: HYPERTENSION
     Dosage: 1 DF, 1D
     Route: 048
     Dates: start: 1996
  5. SALBUTAMOL [Suspect]
     Active Substance: ALBUTEROL

REACTIONS (8)
  - Exposure during pregnancy [Unknown]
  - Hospitalisation [Recovered/Resolved]
  - Ill-defined disorder [Recovered/Resolved]
  - Dry mouth [Unknown]
  - Pruritus [Unknown]
  - Live birth [Unknown]
  - Dizziness [Unknown]
  - Drug dose omission [Not Recovered/Not Resolved]
